FAERS Safety Report 17434796 (Version 2)
Quarter: 2020Q1

REPORT INFORMATION
  Report Type: Spontaneous
  Country: JP (occurrence: JP)
  Receive Date: 20200219
  Receipt Date: 20200226
  Transmission Date: 20200409
  Serious: Yes (Other)
  Sender: FDA-Public Use
  Company Number: JP-TEVA-2020-JP-1186842

PATIENT
  Age: 96 Year
  Sex: Male

DRUGS (1)
  1. FILGRASTIM BS INJ. 150MCG SYRINGE [Suspect]
     Active Substance: FILGRASTIM
     Indication: BONE MARROW FAILURE
     Route: 065

REACTIONS (1)
  - Cytopenia [Unknown]
